FAERS Safety Report 5087806-3 (Version None)
Quarter: 2006Q3

REPORT INFORMATION
  Report Type: 
  Country: None (occurrence: None)
  Receive Date: 20060824
  Receipt Date: 20060614
  Transmission Date: 20061208
  Serious: Yes (Death, Life-Threatening, Hospitalization, Other)
  Sender: FDA-Public Use
  Company Number: PHFR2006GB01988

PATIENT
  Age: 53 Year
  Sex: Female

DRUGS (7)
  1. ZOMETA [Suspect]
     Indication: HYPERCALCAEMIA OF MALIGNANCY
     Dosage: 4 MG, QD
     Dates: start: 20060518
  2. PAMIDRONATE DISODIUM [Suspect]
     Indication: HYPERCALCAEMIA OF MALIGNANCY
     Route: 065
     Dates: start: 20060209
  3. ESOMEPRAZOLE MAGNESIUM [Concomitant]
     Indication: HIATUS HERNIA
     Dosage: 40 MG, QD
     Route: 048
  4. DOMPERIDONE [Concomitant]
     Indication: NAUSEA
     Dosage: 10 MG, TID
     Route: 048
  5. METOCLOPRAMIDE [Concomitant]
     Indication: NAUSEA
     Dosage: 10 MG, TID
     Route: 048
     Dates: start: 20060515
  6. PROPANTHELINE [Concomitant]
     Indication: NIGHT SWEATS
     Dosage: 30 MG, UNK
     Route: 048
  7. MOVICOL [Concomitant]
     Indication: CONSTIPATION
     Route: 048

REACTIONS (6)
  - BLOOD CREATININE INCREASED [None]
  - BLOOD UREA INCREASED [None]
  - MALIGNANT NEOPLASM PROGRESSION [None]
  - NEPHROLITHIASIS [None]
  - RENAL FAILURE ACUTE [None]
  - URETERAL STENT INSERTION [None]
